FAERS Safety Report 6408671-5 (Version None)
Quarter: 2009Q4

REPORT INFORMATION
  Report Type: 
  Country: None (occurrence: None)
  Receive Date: 20091019
  Receipt Date: 20091006
  Transmission Date: 20100525
  Serious: Yes (Hospitalization, Other)
  Sender: FDA-Public Use
  Company Number: 2009US000583

PATIENT
  Sex: Male
  Weight: 2.8 kg

DRUGS (7)
  1. PROGRAF [Suspect]
     Indication: DRUG EXPOSURE DURING PREGNANCY
     Dosage: 5 MG, BID, ORAL
     Route: 048
  2. RAPAMUNE [Concomitant]
  3. AZATHIOPRINE SODIUM [Concomitant]
  4. AXID [Concomitant]
  5. LISINOPRIL [Concomitant]
  6. METHYLDOPA [Concomitant]
  7. PRENATAL VITAMINS ( TOCOPHEROL, NICOTINIC ACID, VITAMIN D, MINERALS, V [Concomitant]

REACTIONS (3)
  - FALLOT'S TETRALOGY [None]
  - MATERNAL DRUGS AFFECTING FOETUS [None]
  - PREMATURE BABY [None]
